FAERS Safety Report 17141153 (Version 2)
Quarter: 2019Q4

REPORT INFORMATION
  Report Type: Spontaneous
  Country: US (occurrence: US)
  Receive Date: 20191211
  Receipt Date: 20191212
  Transmission Date: 20200122
  Serious: No
  Sender: FDA-Public Use
  Company Number: US-PFIZER INC-2019522897

PATIENT
  Sex: Male
  Weight: 97.52 kg

DRUGS (5)
  1. AMIODARONE [Concomitant]
     Active Substance: AMIODARONE
     Dosage: 200 MILLIGRAM, QD
     Route: 048
  2. APTIOM [Concomitant]
     Active Substance: ESLICARBAZEPINE ACETATE
     Dosage: 800 MILLIGRAM, QD
     Route: 048
  3. ELIQUIS [Suspect]
     Active Substance: APIXABAN
     Indication: CEREBROVASCULAR ACCIDENT PROPHYLAXIS
     Dosage: 5 MILLIGRAM, BID
     Route: 048
     Dates: start: 201905
  4. TAFAMIDIS MEGLUMINE [Suspect]
     Active Substance: TAFAMIDIS MEGLUMINE
     Indication: AMYLOIDOSIS
     Dosage: 80 MILLIGRAM DAILY (20 MG FOUR TIMES A DAY)
     Route: 065
     Dates: start: 201907
  5. LOSARTAN. [Concomitant]
     Active Substance: LOSARTAN
     Indication: BLOOD PRESSURE MEASUREMENT
     Dosage: 50 MILLIGRAM, QD
     Route: 048

REACTIONS (1)
  - Contusion [Unknown]
